FAERS Safety Report 7503567-X (Version None)
Quarter: 2011Q2

REPORT INFORMATION
  Report Type: 
  Country: None (occurrence: None)
  Receive Date: 20110525
  Receipt Date: 20110517
  Transmission Date: 20111010
  Serious: Yes (Other)
  Sender: FDA-Public Use
  Company Number: NL-ROCHE-779020

PATIENT

DRUGS (4)
  1. MTX [Concomitant]
  2. LUCENTIS [Suspect]
     Indication: VENOUS OCCLUSION
     Route: 031
  3. ASCAL [Concomitant]
  4. AVASTIN [Suspect]
     Indication: VENOUS OCCLUSION
     Route: 065

REACTIONS (1)
  - IIIRD NERVE DISORDER [None]
